FAERS Safety Report 17350782 (Version 1)
Quarter: 2020Q1

REPORT INFORMATION
  Report Type: Spontaneous
  Country: IN (occurrence: IN)
  Receive Date: 20200130
  Receipt Date: 20200130
  Transmission Date: 20200409
  Serious: Yes (Death)
  Sender: FDA-Public Use
  Company Number: IN-INCYTE CORPORATION-2020IN000762

PATIENT

DRUGS (1)
  1. JAKAVI [Suspect]
     Active Substance: RUXOLITINIB
     Indication: MYELOFIBROSIS
     Dosage: 15 MG, BID
     Route: 065

REACTIONS (5)
  - Pulmonary alveolar haemorrhage [Fatal]
  - Pseudomonas infection [Fatal]
  - Tachypnoea [Unknown]
  - Pleural effusion [Unknown]
  - Pyrexia [Unknown]
